FAERS Safety Report 20472502 (Version 2)
Quarter: 2022Q2

REPORT INFORMATION
  Report Type: Spontaneous
  Country: US (occurrence: US)
  Receive Date: 20220215
  Receipt Date: 20220513
  Transmission Date: 20220721
  Serious: No
  Sender: FDA-Public Use
  Company Number: US-BoehringerIngelheim-2022-BI-153870

PATIENT
  Age: 79 Year
  Sex: Female

DRUGS (2)
  1. ATROVENT HFA [Suspect]
     Active Substance: IPRATROPIUM BROMIDE
     Indication: Asthma
     Dosage: INHALATION AEROSOL; 2 PUFFS 4 TIMES DAILY
     Dates: start: 2009
  2. FLOVENT [Concomitant]
     Active Substance: FLUTICASONE PROPIONATE
     Indication: Product used for unknown indication

REACTIONS (3)
  - Burning sensation [Not Recovered/Not Resolved]
  - Product after taste [Unknown]
  - Off label use [Unknown]

NARRATIVE: CASE EVENT DATE: 20220213
